FAERS Safety Report 7913100-6 (Version None)
Quarter: 2011Q4

REPORT INFORMATION
  Report Type: 
  Country: None (occurrence: None)
  Receive Date: 20111114
  Receipt Date: 20111104
  Transmission Date: 20120403
  Serious: Yes (Other)
  Sender: FDA-Public Use
  Company Number: US-ASTRAZENECA-2011SE66816

PATIENT
  Sex: Female

DRUGS (2)
  1. CRESTOR [Suspect]
     Route: 048
  2. CIPRO [Concomitant]
     Indication: INFECTION

REACTIONS (3)
  - HYPOVOLAEMIA [None]
  - LOW DENSITY LIPOPROTEIN DECREASED [None]
  - RHABDOMYOLYSIS [None]
